FAERS Safety Report 11148149 (Version 1)
Quarter: 2015Q2

REPORT INFORMATION
  Report Type: Spontaneous
  Country: IT (occurrence: IT)
  Receive Date: 20150529
  Receipt Date: 20150529
  Transmission Date: 20150821
  Serious: Yes (Hospitalization)
  Sender: FDA-Public Use
  Company Number: IT-JNJFOC-20150517809

PATIENT
  Age: 65 Year
  Sex: Male

DRUGS (2)
  1. REMICADE [Suspect]
     Active Substance: INFLIXIMAB
     Indication: CROHN^S DISEASE
     Dosage: CYCLIC
     Route: 042
     Dates: start: 20110428, end: 20150319
  2. METHOTREXATE [Suspect]
     Active Substance: METHOTREXATE
     Indication: RHEUMATOID ARTHRITIS
     Dosage: 15 MG/2ML INJECTABLE SOLUTION
     Route: 030
     Dates: start: 20060101, end: 20150430

REACTIONS (2)
  - Bronchopneumonia [Recovering/Resolving]
  - Squamous cell carcinoma of lung [Recovering/Resolving]

NARRATIVE: CASE EVENT DATE: 201502
